FAERS Safety Report 24010102 (Version 1)
Quarter: 2024Q2

REPORT INFORMATION
  Report Type: Spontaneous
  Country: US (occurrence: None)
  Receive Date: 20240624
  Receipt Date: 20240624
  Transmission Date: 20240716
  Serious: Yes (Disabling, Other)
  Sender: FDA-Public Use
  Company Number: None

PATIENT
  Age: 63 Year
  Sex: Female
  Weight: 51.3 kg

DRUGS (14)
  1. COSMETICS [Suspect]
     Active Substance: COSMETICS
     Indication: Prophylaxis against solar radiation
     Dates: start: 20240619, end: 20240619
  2. COSMETICS [Suspect]
     Active Substance: COSMETICS
     Indication: Product used for unknown indication
     Dosage: FREQUENCY : EVERY 4 HOURS;?
     Route: 061
     Dates: start: 20240614, end: 20240619
  3. COSMETICS [Suspect]
     Active Substance: COSMETICS
  4. COSMETICS [Suspect]
     Active Substance: COSMETICS
  5. LEVOTHYROXINE [Concomitant]
     Active Substance: LEVOTHYROXINE\LEVOTHYROXINE SODIUM
  6. VITAMIN D3 [Concomitant]
     Active Substance: CHOLECALCIFEROL
  7. CALCIUM [Concomitant]
     Active Substance: CALCIUM
  8. METHYLCOBALAMIN [Concomitant]
     Active Substance: METHYLCOBALAMIN
  9. citrus bergamot [Concomitant]
  10. SELENIUM [Concomitant]
     Active Substance: SELENIUM
  11. ZINC [Concomitant]
     Active Substance: PYRITHIONE ZINC\ZINC\ZINC CHLORIDE
  12. magnesium l-thresonate [Concomitant]
  13. MAGNESIUM CITRATE [Concomitant]
     Active Substance: MAGNESIUM CITRATE
  14. VITAMIN C [Concomitant]
     Active Substance: ASCORBIC ACID

REACTIONS (9)
  - Skin irritation [None]
  - Pain [None]
  - Erythema [None]
  - Pruritus [None]
  - Blister [None]
  - Dysphonia [None]
  - Skin fissures [None]
  - Dermatitis contact [None]
  - Sensitive skin [None]

NARRATIVE: CASE EVENT DATE: 20240619
